FAERS Safety Report 11164408 (Version 1)
Quarter: 2015Q2

REPORT INFORMATION
  Report Type: Report from Study
  Country: FR (occurrence: FR)
  Receive Date: 20150604
  Receipt Date: 20150604
  Transmission Date: 20150821
  Serious: Yes (Death, Hospitalization)
  Sender: FDA-Public Use
  Company Number: FR-009507513-1504FRA024401

PATIENT
  Age: 70 Year
  Sex: Male
  Weight: 52 kg

DRUGS (11)
  1. FIDAXOMICIN [Suspect]
     Active Substance: FIDAXOMICIN
     Indication: CLOSTRIDIUM DIFFICILE INFECTION
     Dosage: 40 MG, QD
     Route: 048
     Dates: start: 20141128, end: 20141208
  2. FUMAFER [Concomitant]
     Active Substance: FERROUS FUMARATE
     Dosage: UNK, BID
  3. KARDEGIC [Concomitant]
     Active Substance: ASPIRIN LYSINE
     Dosage: UNK, QD
  4. ATROVENT [Concomitant]
     Active Substance: IPRATROPIUM BROMIDE
     Dosage: UNK
     Route: 055
  5. PHENOBARBITAL. [Concomitant]
     Active Substance: PHENOBARBITAL
     Dosage: UNK, QD
  6. SPIRIVA [Concomitant]
     Active Substance: TIOTROPIUM BROMIDE MONOHYDRATE
     Route: 055
  7. CALCIUM (UNSPECIFIED) (+) CHOLECALCIFEROL [Concomitant]
  8. FORADIL [Concomitant]
     Active Substance: FORMOTEROL FUMARATE
     Route: 055
  9. BRICANYL [Concomitant]
     Active Substance: TERBUTALINE SULFATE
     Route: 055
  10. THEOPHYLLINE [Concomitant]
     Active Substance: THEOPHYLLINE ANHYDROUS
     Dosage: UNK, QD
  11. PULMICORT TURBUHALER [Concomitant]
     Active Substance: BUDESONIDE
     Route: 055

REACTIONS (2)
  - Clostridium difficile infection [Not Recovered/Not Resolved]
  - Respiratory distress [Fatal]

NARRATIVE: CASE EVENT DATE: 20150127
